FAERS Safety Report 18008931 (Version 4)
Quarter: 2021Q4

REPORT INFORMATION
  Report Type: Spontaneous
  Country: JP (occurrence: JP)
  Receive Date: 20200710
  Receipt Date: 20211105
  Transmission Date: 20220303
  Serious: Yes (Death, Hospitalization, Other)
  Sender: FDA-Public Use
  Company Number: JP-GSKNCCC-CASE-00981479_AE-31020

PATIENT
  Age: 72 Year
  Sex: Male

DRUGS (3)
  1. BENLYSTA [Suspect]
     Active Substance: BELIMUMAB
     Indication: Systemic lupus erythematosus
     Dosage: 200 MG, WE(ON WEDNESDAY)
     Route: 058
     Dates: start: 20191214, end: 20200101
  2. PREDONINE [Concomitant]
     Active Substance: PREDNISOLONE
     Indication: Rheumatoid arthritis
     Dosage: 6 MG, QD
     Dates: end: 20200227
  3. PREDONINE [Concomitant]
     Active Substance: PREDNISOLONE
     Indication: Systemic lupus erythematosus

REACTIONS (10)
  - Castleman^s disease [Fatal]
  - Pyrexia [Fatal]
  - Dyspnoea [Fatal]
  - Pleurisy [Fatal]
  - Pleural effusion [Fatal]
  - Ascites [Fatal]
  - Platelet count decreased [Fatal]
  - Skin oedema [Not Recovered/Not Resolved]
  - Inflammation [Not Recovered/Not Resolved]
  - Oedema peripheral [Not Recovered/Not Resolved]

NARRATIVE: CASE EVENT DATE: 20191220
